FAERS Safety Report 5265011-5 (Version None)
Quarter: 2007Q1

REPORT INFORMATION
  Report Type: 
  Country: None (occurrence: None)
  Receive Date: 20061121
  Receipt Date: 20051027
  Transmission Date: 20070707
  Serious: No
  Sender: FDA-Public Use
  Company Number: TPA2005A01357

PATIENT
  Sex: Female

DRUGS (4)
  1. ROZEREM [Suspect]
     Indication: INSOMNIA
     Dosage: 8 MG, QHS, PER ORAL
     Route: 048
     Dates: start: 20050928, end: 20051205
  2. AMBIEN [Suspect]
     Indication: INSOMNIA
     Dosage: 5 MG, QHS, PER ORAL
     Route: 048
  3. SEROQUEL [Concomitant]
  4. INDERAL [Concomitant]

REACTIONS (2)
  - HALLUCINATION, VISUAL [None]
  - NIGHTMARE [None]
